FAERS Safety Report 18501993 (Version 3)
Quarter: 2020Q4

REPORT INFORMATION
  Report Type: Report from Study
  Country: None (occurrence: CA)
  Receive Date: 20201113
  Receipt Date: 20201221
  Transmission Date: 20210114
  Serious: Yes (Other)
  Sender: FDA-Public Use
  Company Number: CA-ABBVIE-20K-028-3648852-00

PATIENT
  Sex: Male

DRUGS (1)
  1. LUPRON DEPOT [Suspect]
     Active Substance: LEUPROLIDE ACETATE
     Indication: PROSTATE CANCER
     Route: 030
     Dates: end: 20200819

REACTIONS (6)
  - Aortic aneurysm [Unknown]
  - Angiopathy [Unknown]
  - Prostate examination abnormal [Unknown]
  - Contracted bladder [Unknown]
  - Prostate cancer [Recovering/Resolving]
  - Prostatic specific antigen abnormal [Unknown]
